FAERS Safety Report 9513164 (Version 1)
Quarter: 2013Q1

REPORT INFORMATION
  Report Type: Spontaneous
  Country: US (occurrence: None)
  Receive Date: 20130305
  Receipt Date: 20130305
  Transmission Date: 20140127
  Serious: Yes (Other)
  Sender: FDA-Public Use
  Company Number: 163-21880-12080171

PATIENT
  Age: 75 Year
  Sex: Male

DRUGS (2)
  1. REVLIMIB (LENALIDOMIDE) (CAPSULES) [Suspect]
     Indication: PLASMA CELL MYELOMA
     Dosage: 5 MG, 21 IN 21 D, PO
     Route: 048
     Dates: start: 20120529, end: 20120905
  2. DOXAZOSIN (DOXAZOSIN) [Concomitant]

REACTIONS (3)
  - Drug intolerance [None]
  - Gastrointestinal disorder [None]
  - Treatment noncompliance [None]
